FAERS Safety Report 4334701-0 (Version None)
Quarter: 2004Q2

REPORT INFORMATION
  Report Type: 
  Country: None (occurrence: None)
  Receive Date: 20040407
  Receipt Date: 20040407
  Transmission Date: 20050107
  Serious: Yes (Life-Threatening)
  Sender: FDA-Public Use
  Company Number: None

PATIENT
  Sex: Female
  Weight: 74.8435 kg

DRUGS (2)
  1. LEVAQUIN [Suspect]
     Indication: BRONCHITIS
     Dosage: 750MG  ONCE DAILY  ORAL
     Route: 048
     Dates: start: 20040322, end: 20040325
  2. TUSSI-BID [Concomitant]

REACTIONS (9)
  - ANXIETY [None]
  - CHEST PAIN [None]
  - DIZZINESS [None]
  - INSOMNIA [None]
  - NAUSEA [None]
  - PALPITATIONS [None]
  - POLLAKIURIA [None]
  - RESTLESSNESS [None]
  - TREMOR [None]
